FAERS Safety Report 9197119 (Version 1)
Quarter: 2013Q1

REPORT INFORMATION
  Report Type: Spontaneous
  Country: US (occurrence: US)
  Receive Date: 20130328
  Receipt Date: 20130328
  Transmission Date: 20140127
  Serious: No
  Sender: FDA-Public Use
  Company Number: US-TEVA-394958USA

PATIENT
  Sex: Female

DRUGS (1)
  1. QNASL [Suspect]
     Indication: HYPERSENSITIVITY
     Dates: start: 20130318

REACTIONS (1)
  - Rash [Unknown]
